FAERS Safety Report 10562042 (Version 2)
Quarter: 2014Q4

REPORT INFORMATION
  Report Type: Spontaneous
  Country: US (occurrence: US)
  Receive Date: 20141104
  Receipt Date: 20141113
  Transmission Date: 20150529
  Serious: Yes (Death, Hospitalization, Other)
  Sender: FDA-Public Use
  Company Number: US-009507513-1411USA000122

PATIENT
  Age: 37 Year
  Sex: Female

DRUGS (1)
  1. KEYTRUDA [Suspect]
     Active Substance: PEMBROLIZUMAB
     Indication: METASTATIC OCULAR MELANOMA
     Dosage: 2 MG, Q3W
     Route: 042
     Dates: start: 20141013, end: 20141013

REACTIONS (2)
  - Metastatic ocular melanoma [Fatal]
  - Off label use [Unknown]

NARRATIVE: CASE EVENT DATE: 201410
